FAERS Safety Report 7819613-X (Version None)
Quarter: 2011Q4

REPORT INFORMATION
  Report Type: 
  Country: None (occurrence: None)
  Receive Date: 20111018
  Receipt Date: 20111018
  Transmission Date: 20120403
  Serious: Yes (Other)
  Sender: FDA-Public Use
  Company Number: None

PATIENT
  Age: 47 Year
  Sex: Male
  Weight: 124.73 kg

DRUGS (1)
  1. TOPIRAMATE [Suspect]
     Indication: MIGRAINE
     Dosage: 1TABLET
     Route: 048
     Dates: start: 20110116, end: 20110118

REACTIONS (7)
  - DRUG INEFFECTIVE [None]
  - BLOOD PRESSURE INCREASED [None]
  - PANIC ATTACK [None]
  - DRUG DEPENDENCE [None]
  - INSOMNIA [None]
  - EMOTIONAL DISTRESS [None]
  - ANXIETY [None]
